FAERS Safety Report 9246296 (Version 1)
Quarter: 2013Q2

REPORT INFORMATION
  Report Type: Spontaneous
  Country: CH (occurrence: CH)
  Receive Date: 20130422
  Receipt Date: 20130422
  Transmission Date: 20140414
  Serious: Yes (Hospitalization)
  Sender: FDA-Public Use
  Company Number: PHHY2013CH038159

PATIENT
  Age: 13 Year
  Sex: Male
  Weight: 34 kg

DRUGS (2)
  1. CLARITHROMYCIN SANDOZ [Suspect]
     Indication: PNEUMONIA
     Dosage: 500 MG, QD
     Route: 048
     Dates: start: 20121219, end: 20121224
  2. VENTOLIN [Concomitant]
     Indication: BRONCHIAL OBSTRUCTION
     Dates: start: 20121222

REACTIONS (2)
  - Liver injury [Recovered/Resolved]
  - Prothrombin time prolonged [Recovered/Resolved]
